FAERS Safety Report 17863829 (Version 1)
Quarter: 2020Q2

REPORT INFORMATION
  Report Type: Report from Study
  Country: None (occurrence: US)
  Receive Date: 20200605
  Receipt Date: 20200605
  Transmission Date: 20200714
  Serious: No
  Sender: FDA-Public Use
  Company Number: US-US WORLDMEDS, LLC-USW202003-000477

PATIENT
  Age: 74 Year
  Sex: Male
  Weight: 82.5 kg

DRUGS (3)
  1. RYTARY [Concomitant]
     Active Substance: CARBIDOPA\LEVODOPA
     Dosage: UNKNOWN
  2. APOKYN [Suspect]
     Active Substance: APOMORPHINE HYDROCHLORIDE
     Indication: PARKINSON^S DISEASE
     Route: 058
     Dates: start: 20200303
  3. APOKYN [Suspect]
     Active Substance: APOMORPHINE HYDROCHLORIDE
     Route: 058
     Dates: start: 20200303

REACTIONS (13)
  - Cold sweat [Unknown]
  - Feeling of body temperature change [Unknown]
  - Hyperventilation [Unknown]
  - Tremor [Recovered/Resolved]
  - Joint stiffness [Unknown]
  - Bruxism [Recovered/Resolved]
  - Pallor [Unknown]
  - Feeling hot [Unknown]
  - Blood pressure decreased [Recovered/Resolved]
  - Yawning [Unknown]
  - Paraesthesia [Unknown]
  - Hypoaesthesia [Unknown]
  - Nausea [Unknown]

NARRATIVE: CASE EVENT DATE: 20200303
